FAERS Safety Report 5840148-8 (Version None)
Quarter: 2008Q3

REPORT INFORMATION
  Report Type: 
  Country: None (occurrence: None)
  Receive Date: 20080730
  Receipt Date: 20080328
  Transmission Date: 20090109
  Serious: No
  Sender: FDA-Public Use
  Company Number: PHEH2008US03306

PATIENT
  Age: 68 Year
  Sex: Male

DRUGS (12)
  1. TEKTURNA [Suspect]
     Dosage: 300 MG, QD, ORAL
     Route: 048
     Dates: start: 20080324
  2. DIOVAN [Concomitant]
  3. COUMADIN [Concomitant]
  4. LASIX [Concomitant]
  5. ZAROXOLYNE (METOLAZONE) [Concomitant]
  6. HUMALOG [Concomitant]
  7. ALDACTONE [Concomitant]
  8. TENORMIN [Concomitant]
  9. TRENTAL [Concomitant]
  10. ZOCOR [Concomitant]
  11. ACCUPRIL [Concomitant]
  12. FOLTX (CYANOCOBALAMIN, FOLIC ACID, PYRIDOXINE) [Concomitant]

REACTIONS (1)
  - INTERNATIONAL NORMALISED RATIO DECREASED [None]
